FAERS Safety Report 8089524-6 (Version None)
Quarter: 2012Q1

REPORT INFORMATION
  Report Type: 
  Country: None (occurrence: None)
  Receive Date: 20120128
  Receipt Date: 20110712
  Transmission Date: 20120608
  Serious: No
  Sender: FDA-Public Use
  Company Number: US-ABBOTT-11P-163-0838482-00

PATIENT
  Sex: Female
  Weight: 48.578 kg

DRUGS (7)
  1. ACTONEL [Concomitant]
     Indication: OSTEOPENIA
  2. HUMIRA [Suspect]
     Indication: RHEUMATOID ARTHRITIS
     Dates: start: 20110401, end: 20110601
  3. MELOXICAM [Concomitant]
     Indication: RHEUMATOID ARTHRITIS
  4. DOXYCYCLINE [Concomitant]
     Indication: ARTHRITIS
  5. BACLOFEN [Concomitant]
     Indication: ARTHRITIS
  6. HUMIRA [Suspect]
     Indication: OSTEOARTHRITIS
     Dates: start: 20110601
  7. AMITRIPTYLINE HCL [Concomitant]
     Indication: PAIN

REACTIONS (3)
  - DRUG INEFFECTIVE [None]
  - ARTHRALGIA [None]
  - STOMATITIS [None]
